FAERS Safety Report 13357936 (Version 1)
Quarter: 2017Q1

REPORT INFORMATION
  Report Type: Spontaneous
  Country: US (occurrence: US)
  Receive Date: 20170322
  Receipt Date: 20170322
  Transmission Date: 20170429
  Serious: No
  Sender: FDA-Public Use
  Company Number: US-PFIZER INC-2017120642

PATIENT
  Age: 74 Year
  Sex: Female

DRUGS (6)
  1. AMLODIPINE BESILATE [Concomitant]
     Active Substance: AMLODIPINE BESYLATE
     Dosage: 5MG, TABLET, ORALLY, TWICE A DAY
     Route: 048
  2. METOPROLOL SUCC ER [Concomitant]
     Active Substance: METOPROLOL SUCCINATE
     Indication: HYPERTENSION
     Dosage: 100MG, TABLET, ORALLY. CONSUMER WAS TAKING IT 3 TIMES A DAY AND HER INSURANCE CUT HER DOWN ON IT.
     Route: 048
     Dates: start: 1996
  3. LOSARTAN-HCTZ [Concomitant]
     Active Substance: HYDROCHLOROTHIAZIDE\LOSARTAN
     Indication: HYPERTENSION
     Dosage: [LOSARTAN 100MG/HYDROCHLOROTHIAZIDE 12.5MG] ONE A DAY
     Route: 048
  4. ALBUTEROL. [Concomitant]
     Active Substance: ALBUTEROL
  5. SPIRIVA [Concomitant]
     Active Substance: TIOTROPIUM BROMIDE MONOHYDRATE
     Indication: CHRONIC OBSTRUCTIVE PULMONARY DISEASE
     Dosage: INHALER
  6. PREMARIN [Suspect]
     Active Substance: ESTROGENS, CONJUGATED
     Indication: OESTROGEN DEFICIENCY
     Dosage: JUST ONCE AND IT^S EVERY TWO AND A HALF DAYS IT SAYS, I GO THREE DAYS

REACTIONS (4)
  - Skin odour abnormal [Unknown]
  - Feeling abnormal [Unknown]
  - Groin pain [Unknown]
  - Pruritus [Unknown]
